FAERS Safety Report 4647502-0 (Version None)
Quarter: 2005Q2

REPORT INFORMATION
  Report Type: 
  Country: None (occurrence: None)
  Receive Date: 20050428
  Receipt Date: 20050309
  Transmission Date: 20051028
  Serious: Yes (Other)
  Sender: FDA-Public Use
  Company Number: JP-ROCHE-399334

PATIENT
  Age: 56 Year
  Sex: Male

DRUGS (13)
  1. TAMIFLU [Suspect]
     Indication: INFLUENZA
     Route: 048
     Dates: start: 20050302, end: 20050306
  2. AKINETON [Concomitant]
     Route: 048
     Dates: start: 19900614
  3. BEZATOL SR [Concomitant]
     Route: 048
     Dates: start: 19900614
  4. HALCION [Concomitant]
     Route: 048
     Dates: start: 19900114
  5. EURODIN [Concomitant]
     Route: 048
     Dates: start: 20001121
  6. HIRNAMIN [Concomitant]
     Route: 048
     Dates: start: 20001121
  7. OTHER DRUGS (NOT SPECIFIED) [Concomitant]
     Route: 048
     Dates: start: 20001121
  8. PURSENNID [Concomitant]
     Route: 048
     Dates: start: 20001121
  9. FLURAZEPAM [Concomitant]
     Route: 048
     Dates: start: 20030309
  10. RISPERDAL [Concomitant]
     Route: 048
     Dates: start: 20030328
  11. MEILAX [Concomitant]
     Route: 048
     Dates: start: 20030915
  12. LENDORM [Concomitant]
     Route: 048
     Dates: start: 20040302
  13. EUGLUCON [Concomitant]
     Route: 048
     Dates: start: 20050125

REACTIONS (6)
  - ARTHRALGIA [None]
  - BACK PAIN [None]
  - BLOOD CREATINE PHOSPHOKINASE INCREASED [None]
  - BLOOD GLUCOSE INCREASED [None]
  - DYSPHONIA [None]
  - RED BLOOD CELL SEDIMENTATION RATE INCREASED [None]
